FAERS Safety Report 13667875 (Version 1)
Quarter: 2017Q2

REPORT INFORMATION
  Report Type: Report from Study
  Country: US (occurrence: US)
  Receive Date: 20170620
  Receipt Date: 20170620
  Transmission Date: 20170830
  Serious: Yes (Death, Hospitalization, Other)
  Sender: FDA-Public Use
  Company Number: US-TEVA-736268ACC

PATIENT
  Age: 56 Year
  Sex: Male

DRUGS (3)
  1. VELCADE [Suspect]
     Active Substance: BORTEZOMIB
     Indication: PLASMA CELL MYELOMA
     Dosage: (ON DAYS 1 AND 4 EVERY 7 DAYS, ONE WEEK OFF EVERY 14 DAYS)
     Route: 042
     Dates: start: 20160826
  2. DEXAMETHASONE. [Suspect]
     Active Substance: DEXAMETHASONE
     Indication: PLASMA CELL MYELOMA
     Dosage: (ON DAYS 1, 4, 8, 11 OF 28 DAYS CYCLE)
     Route: 048
     Dates: start: 20160826
  3. BENDAMUSTINE HYDROCHLORIDE. [Suspect]
     Active Substance: BENDAMUSTINE HYDROCHLORIDE
     Indication: PLASMA CELL MYELOMA
     Dosage: (ON DAYS 1 AND 4)
     Route: 042
     Dates: start: 20160826

REACTIONS (3)
  - Plasma cell myeloma [Fatal]
  - Febrile neutropenia [Recovered/Resolved]
  - Prescribed underdose [Unknown]

NARRATIVE: CASE EVENT DATE: 20160826
